FAERS Safety Report 6856939-0 (Version None)
Quarter: 2010Q3

REPORT INFORMATION
  Report Type: 
  Country: None (occurrence: None)
  Receive Date: 20100719
  Receipt Date: 20100715
  Transmission Date: 20110219
  Serious: Yes (Hospitalization, Other)
  Sender: FDA-Public Use
  Company Number: BR-BAYER-200923452LA

PATIENT
  Age: 0 Hour
  Sex: Male
  Weight: 12 kg

DRUGS (2)
  1. YASMIN [Suspect]
     Indication: CONTRACEPTION
     Route: 064
  2. MATERNA [Concomitant]
     Route: 064

REACTIONS (2)
  - HEART RATE INCREASED [None]
  - JAUNDICE NEONATAL [None]
